FAERS Safety Report 7998320-7 (Version None)
Quarter: 2011Q4

REPORT INFORMATION
  Report Type: 
  Country: None (occurrence: None)
  Receive Date: 20111221
  Receipt Date: 20110707
  Transmission Date: 20120403
  Serious: No
  Sender: FDA-Public Use
  Company Number: US-GLAXOSMITHKLINE-A0935343A

PATIENT
  Age: 57 Year
  Sex: Female

DRUGS (10)
  1. BETA BLOCKER [Concomitant]
  2. METOPROLOL TARTRATE [Concomitant]
  3. ASPIRIN [Concomitant]
  4. PRASUGREL [Concomitant]
     Route: 048
  5. VITAMIN D [Concomitant]
  6. LOVAZA [Suspect]
     Indication: CORONARY ARTERIAL STENT INSERTION
     Dosage: 1000MG TWICE PER DAY
     Route: 048
     Dates: start: 20110701, end: 20110704
  7. VITAMIN B COMPLEX CAP [Concomitant]
  8. UNSPECIFIED MEDICATION [Concomitant]
  9. COZAAR [Concomitant]
  10. MULTI-VITAMIN [Concomitant]

REACTIONS (1)
  - HYPERCHLORHYDRIA [None]
